FAERS Safety Report 18672686 (Version 1)
Quarter: 2020Q4

REPORT INFORMATION
  Report Type: Spontaneous
  Country: US (occurrence: US)
  Receive Date: 20201229
  Receipt Date: 20201229
  Transmission Date: 20210114
  Serious: Yes (Other)
  Sender: FDA-Public Use
  Company Number: US-CURIUM-200900502

PATIENT
  Age: 3 Month
  Sex: Male
  Weight: 6.4 kg

DRUGS (6)
  1. LANTHEUS GENERATOR [Concomitant]
     Indication: RENAL SCAN
     Route: 042
     Dates: start: 20090415, end: 20090415
  2. TECHNESCAN MAG3 [Suspect]
     Active Substance: TECHNETIUM TC-99M TIATIDE
     Indication: RENAL SCAN
     Route: 042
     Dates: start: 20090415, end: 20090415
  3. ZANTAC                             /00550802/ [Concomitant]
     Indication: PRODUCT USED FOR UNKNOWN INDICATION
     Route: 065
  4. LASIX [Concomitant]
     Active Substance: FUROSEMIDE
     Dates: start: 20090415
  5. AMOXICILLIN. [Concomitant]
     Active Substance: AMOXICILLIN
     Indication: KIDNEY INFECTION
     Route: 065
  6. DIPRIVAN [Concomitant]
     Active Substance: PROPOFOL
     Indication: SEDATION
     Dosage: UNK
     Route: 065
     Dates: start: 20090415

REACTIONS (3)
  - Dyspnoea [Recovered/Resolved]
  - Stridor [Recovered/Resolved]
  - Tachycardia [Recovered/Resolved]

NARRATIVE: CASE EVENT DATE: 20090415
